FAERS Safety Report 11752908 (Version 1)
Quarter: 2015Q4

REPORT INFORMATION
  Report Type: Spontaneous
  Country: US (occurrence: US)
  Receive Date: 20151119
  Receipt Date: 20151119
  Transmission Date: 20160304
  Serious: Yes (Other)
  Sender: FDA-Public Use
  Company Number: US-BEH-2015055846

PATIENT
  Sex: Female
  Weight: 53 kg

DRUGS (24)
  1. XOLAIR [Concomitant]
     Active Substance: OMALIZUMAB
  2. NEURONTIN [Concomitant]
     Active Substance: GABAPENTIN
  3. FLUCONAZOLE. [Concomitant]
     Active Substance: FLUCONAZOLE
  4. FROVA [Concomitant]
     Active Substance: FROVATRIPTAN SUCCINATE
  5. HYOSCYAMINE. [Concomitant]
     Active Substance: HYOSCYAMINE
  6. LIDOCAINE. [Concomitant]
     Active Substance: LIDOCAINE
  7. OXYCODONE [Concomitant]
     Active Substance: OXYCODONE
  8. ALPRAZOLAM. [Concomitant]
     Active Substance: ALPRAZOLAM
  9. DIPHENHYDRAMINE. [Concomitant]
     Active Substance: DIPHENHYDRAMINE
  10. LIDOCAINE/PRILOCAINE [Concomitant]
  11. EPIPEN [Concomitant]
     Active Substance: EPINEPHRINE
  12. SINGULAIR [Concomitant]
     Active Substance: MONTELUKAST SODIUM
  13. RESTASIS [Concomitant]
     Active Substance: CYCLOSPORINE
  14. LASIX [Concomitant]
     Active Substance: FUROSEMIDE
  15. ACETAMINOPHEN. [Concomitant]
     Active Substance: ACETAMINOPHEN
  16. AMOXICILLIN. [Concomitant]
     Active Substance: AMOXICILLIN
  17. MORPHINE [Concomitant]
     Active Substance: MORPHINE
  18. ADULT ASPIRIN [Concomitant]
  19. HIZENTRA [Suspect]
     Active Substance: HUMAN IMMUNOGLOBULIN G
     Indication: ASTHMA
     Route: 058
  20. PREDNISONE. [Concomitant]
     Active Substance: PREDNISONE
  21. ADVAIR HFA [Concomitant]
     Active Substance: FLUTICASONE PROPIONATE\SALMETEROL XINAFOATE
  22. NEXIUM [Concomitant]
     Active Substance: ESOMEPRAZOLE MAGNESIUM
  23. HIZENTRA [Suspect]
     Active Substance: HUMAN IMMUNOGLOBULIN G
     Indication: IMMUNODEFICIENCY COMMON VARIABLE
     Route: 058
  24. LACTULOSE. [Concomitant]
     Active Substance: LACTULOSE

REACTIONS (3)
  - Somnolence [Unknown]
  - Loss of consciousness [Unknown]
  - Laceration [Unknown]
